FAERS Safety Report 9631060 (Version 2)
Quarter: 2013Q4

REPORT INFORMATION
  Report Type: Spontaneous
  Country: US (occurrence: None)
  Receive Date: 20131016
  Receipt Date: 20131216
  Transmission Date: 20140711
  Serious: Yes (Other)
  Sender: FDA-Public Use
  Company Number: EUS-2013-00639

PATIENT
  Age: 15 Year
  Sex: Male

DRUGS (4)
  1. ASPARAGINASE (UNSPECIFIED) (ASPARAGINASE) [Suspect]
     Indication: ACUTE LYMPHOCYTIC LEUKAEMIA
     Dosage: 2500, 2, 500 IU/M^2
  2. PREDNISONE (PREDNISONE) [Suspect]
     Indication: ACUTE LYMPHOCYTIC LEUKAEMIA
     Dosage: 1 DAYS
  3. VINCRISTINE (VINSCRISTINE) [Concomitant]
  4. DAUNORUBICIN [Concomitant]

REACTIONS (13)
  - Abdominal pain upper [None]
  - Paraesthesia [None]
  - Jaundice [None]
  - Hepatomegaly [None]
  - Jaundice cholestatic [None]
  - Hyponatraemia [None]
  - Hyporeflexia [None]
  - Inappropriate antidiuretic hormone secretion [None]
  - Neuropathy peripheral [None]
  - Toxicity to various agents [None]
  - Non-alcoholic steatohepatitis [None]
  - Hepatic fibrosis [None]
  - Transaminases increased [None]
